FAERS Safety Report 19714492 (Version 3)
Quarter: 2022Q1

REPORT INFORMATION
  Report Type: Spontaneous
  Country: US (occurrence: US)
  Receive Date: 20210818
  Receipt Date: 20220106
  Transmission Date: 20220424
  Serious: No
  Sender: FDA-Public Use
  Company Number: US-MMM-L950M4H8

PATIENT
  Sex: Female

DRUGS (4)
  1. ZEJULA [Suspect]
     Active Substance: NIRAPARIB
     Indication: Ovarian cancer
     Dosage: 200 MG, QD
     Route: 048
     Dates: start: 20210715
  2. ZEJULA [Suspect]
     Active Substance: NIRAPARIB
     Dosage: 100 MG, QD
  3. ZEJULA [Suspect]
     Active Substance: NIRAPARIB
     Dosage: 200 MG, QD
     Route: 048
     Dates: start: 202112
  4. ZEJULA [Suspect]
     Active Substance: NIRAPARIB
     Dosage: 100 MG

REACTIONS (6)
  - Heart rate increased [Not Recovered/Not Resolved]
  - Oral mucosal blistering [Unknown]
  - Asthenia [Not Recovered/Not Resolved]
  - Laboratory test abnormal [Unknown]
  - Drug ineffective [Unknown]
  - Hypertension [Unknown]
